FAERS Safety Report 9917575 (Version 2)
Quarter: 2014Q1

REPORT INFORMATION
  Report Type: Spontaneous
  Country: DE (occurrence: DE)
  Receive Date: 20140221
  Receipt Date: 20140306
  Transmission Date: 20141002
  Serious: Yes (Hospitalization, Other)
  Sender: FDA-Public Use
  Company Number: DE-UCBSA-112694

PATIENT
  Age: 74 Year
  Sex: Female

DRUGS (5)
  1. NEUPRO [Suspect]
     Dosage: 8MG
  2. STAVELO [Concomitant]
     Dosage: 6X
  3. AMANTADINE [Concomitant]
     Dosage: 3X
  4. QUETIAPINE [Concomitant]
     Dosage: 25MG
  5. DUODOPA [Concomitant]

REACTIONS (2)
  - Acute psychosis [Unknown]
  - Electrocardiogram QT interval [Unknown]
